FAERS Safety Report 16615314 (Version 2)
Quarter: 2021Q1

REPORT INFORMATION
  Report Type: Spontaneous
  Country: JP (occurrence: JP)
  Receive Date: 20190723
  Receipt Date: 20210310
  Transmission Date: 20210419
  Serious: Yes (Hospitalization, Other)
  Sender: FDA-Public Use
  Company Number: JP-GLAXOSMITHKLINE-JP2019JPN129072

PATIENT
  Age: 70 Year
  Sex: Male

DRUGS (3)
  1. BORTEZOMIB. [Suspect]
     Active Substance: BORTEZOMIB
     Indication: PLASMA CELL MYELOMA
     Dosage: 1.3 MG/M2/DAY, ADMINISTERED AT DAY 1,4,8, AND 11
  2. VALTREX [Suspect]
     Active Substance: VALACYCLOVIR HYDROCHLORIDE
     Indication: INFECTION PROPHYLAXIS
     Dosage: 500 MG/DAY, THREE TIMES A WEEK
     Route: 048
  3. DEXAMETHASONE. [Suspect]
     Active Substance: DEXAMETHASONE
     Indication: PLASMA CELL MYELOMA
     Dosage: 20 MG/DAY, ADMINISTERED AT DAY 1, 2, 4, 5, 8, 9, 11, AND 12

REACTIONS (5)
  - Product use in unapproved indication [Unknown]
  - Toxic encephalopathy [Unknown]
  - Drug level increased [Unknown]
  - Altered state of consciousness [Recovered/Resolved]
  - Neurotoxicity [Unknown]
